FAERS Safety Report 25951451 (Version 1)
Quarter: 2025Q4

REPORT INFORMATION
  Report Type: Spontaneous
  Country: US (occurrence: US)
  Receive Date: 20251023
  Receipt Date: 20251023
  Transmission Date: 20260118
  Serious: Yes (Hospitalization)
  Sender: AUTOLUS THERAPEUTICS
  Company Number: US-Autolus Ltd-2187115

PATIENT
  Age: 27 Year
  Sex: Male

DRUGS (1)
  1. AUCATZYL [Suspect]
     Active Substance: OBECABTAGENE AUTOLEUCEL
     Indication: Acute lymphocytic leukaemia
     Dates: start: 20250924, end: 20251003

REACTIONS (4)
  - Pyrexia [Unknown]
  - Malaise [Unknown]
  - Pyrexia [Unknown]
  - Headache [Unknown]

NARRATIVE: CASE EVENT DATE: 20251006
